FAERS Safety Report 6943544-0 (Version None)
Quarter: 2010Q3

REPORT INFORMATION
  Report Type: 
  Country: None (occurrence: None)
  Receive Date: 20100826
  Receipt Date: 20100813
  Transmission Date: 20110219
  Serious: Yes (Hospitalization)
  Sender: FDA-Public Use
  Company Number: GB-MYLANLABS-2010S1012143

PATIENT
  Age: 50 Year
  Sex: Male

DRUGS (3)
  1. DIPYRIDAMOLE [Suspect]
     Indication: HEMIPARESIS
  2. SIMVASTATIN [Suspect]
     Indication: HEMIPARESIS
  3. ASPIRIN [Suspect]
     Indication: HEMIPARESIS

REACTIONS (5)
  - CEREBROVASCULAR ACCIDENT [None]
  - COGNITIVE DISORDER [None]
  - CONVULSION [None]
  - HAEMODYNAMIC INSTABILITY [None]
  - PARTIAL SEIZURES [None]
